FAERS Safety Report 7103920-2 (Version None)
Quarter: 2010Q4

REPORT INFORMATION
  Report Type: 
  Country: None (occurrence: None)
  Receive Date: 20101115
  Receipt Date: 20100519
  Transmission Date: 20110411
  Serious: No
  Sender: FDA-Public Use
  Company Number: US-ALLERGAN-1005497US

PATIENT
  Age: 43 Year
  Sex: Female
  Weight: 49.887 kg

DRUGS (5)
  1. BOTOX COSMETIC [Suspect]
     Indication: SKIN WRINKLING
     Dosage: 30 UNITS, SINGLE
     Route: 030
     Dates: start: 20100416, end: 20100416
  2. FOLATE [Concomitant]
  3. AVASTIN [Concomitant]
  4. DEXADRON [Concomitant]
  5. BENADRYL [Concomitant]

REACTIONS (1)
  - EYELID PTOSIS [None]
